FAERS Safety Report 7991595-X (Version None)
Quarter: 2011Q4

REPORT INFORMATION
  Report Type: 
  Country: None (occurrence: None)
  Receive Date: 20111219
  Receipt Date: 20110918
  Transmission Date: 20120403
  Serious: No
  Sender: FDA-Public Use
  Company Number: US-ALLERGAN-1112380US

PATIENT
  Age: 51 Year
  Sex: Male

DRUGS (1)
  1. LUMIGAN [Suspect]
     Indication: GLAUCOMA

REACTIONS (1)
  - RASH [None]
